FAERS Safety Report 19955333 (Version 1)
Quarter: 2021Q4

REPORT INFORMATION
  Report Type: Spontaneous
  Country: US (occurrence: US)
  Receive Date: 20211014
  Receipt Date: 20211014
  Transmission Date: 20220303
  Serious: Yes (Hospitalization)
  Sender: FDA-Public Use
  Company Number: None

PATIENT
  Age: 82 Year
  Sex: Male

DRUGS (2)
  1. REGEN-COV [Suspect]
     Active Substance: CASIRIVIMAB\IMDEVIMAB
     Dates: start: 20211013, end: 20211013
  2. Regeneron COVID medication MOAB [Concomitant]
     Dates: start: 20211013

REACTIONS (1)
  - Chest pain [None]

NARRATIVE: CASE EVENT DATE: 20211014
